FAERS Safety Report 7722251-0 (Version None)
Quarter: 2011Q3

REPORT INFORMATION
  Report Type: 
  Country: None (occurrence: None)
  Receive Date: 20110831
  Receipt Date: 20110819
  Transmission Date: 20111222
  Serious: No
  Sender: FDA-Public Use
  Company Number: CA-ELI_LILLY_AND_COMPANY-CA201108006116

PATIENT
  Sex: Male

DRUGS (6)
  1. ZYPREXA [Suspect]
     Dosage: 20 MG, EACH EVENING
  2. ZYPREXA [Suspect]
     Dosage: 5 MG, QD
  3. ATIVAN [Concomitant]
  4. ZYPREXA [Suspect]
     Dosage: 10 MG, QD
  5. PERPHENAZINE [Concomitant]
  6. ZYPREXA [Suspect]
     Dosage: 15 MG, QD

REACTIONS (7)
  - BLOOD CHOLESTEROL INCREASED [None]
  - WEIGHT INCREASED [None]
  - HYPOACUSIS [None]
  - DIABETES MELLITUS [None]
  - PNEUMONIA [None]
  - BLOODY DISCHARGE [None]
  - BLOOD TRIGLYCERIDES INCREASED [None]
